FAERS Safety Report 16893936 (Version 1)
Quarter: 2019Q4

REPORT INFORMATION
  Report Type: Spontaneous
  Country: US (occurrence: US)
  Receive Date: 20191008
  Receipt Date: 20191008
  Transmission Date: 20200122
  Serious: Yes (Death)
  Sender: FDA-Public Use
  Company Number: US-ROCHE-2426715

PATIENT
  Age: 25 Year
  Sex: Female
  Weight: 72.7 kg

DRUGS (3)
  1. DIAZEPAM. [Suspect]
     Active Substance: DIAZEPAM
     Indication: GENERAL ANAESTHESIA
     Route: 042
  2. PENTAZOCINE [Suspect]
     Active Substance: PENTAZOCINE
     Indication: GENERAL ANAESTHESIA
     Route: 042
  3. METHOHEXITAL [Suspect]
     Active Substance: METHOHEXITAL
     Indication: GENERAL ANAESTHESIA
     Route: 042

REACTIONS (3)
  - Coma [Fatal]
  - Overdose [Fatal]
  - Respiratory failure [Fatal]
